FAERS Safety Report 10273978 (Version 1)
Quarter: 2014Q1

REPORT INFORMATION
  Report Type: Spontaneous
  Country: US (occurrence: None)
  Receive Date: 20140306
  Receipt Date: 20140306
  Transmission Date: 20141002
  Serious: Yes (Hospitalization)
  Sender: FDA-Public Use
  Company Number: 163-21880-13092752

PATIENT
  Age: 89 Year
  Sex: Female
  Weight: 66.68 kg

DRUGS (20)
  1. REVLIMID (LENALIDOMIDE) (10 MILLIGRAM, CAPSULES) [Suspect]
     Indication: MYELODYSPLASTIC SYNDROME
     Dosage: 10 MG, MONDAY AND THURS, PO
     Route: 048
     Dates: start: 201305
  2. JANUVIA (SITAGLIPTIN PHOSPHATE) (TABLETS) [Concomitant]
  3. LOSARTAN HCTZ (HYDROCHLOROTHIAZIDE W/LOSARTAN) (TABLETS) [Concomitant]
  4. DEXAMETHASONE (DEXAMETHASONE) (TABLETS) [Concomitant]
  5. PRAVASTATIN SODIUM (PRAVASTATIN SODIUM) (TABLETS) [Concomitant]
  6. GLYBURIDE (GLIBENCLAMIDE) (TABLETS) [Concomitant]
  7. PRILOSEC (OMEPRAZOLE) (CAPSULES) [Concomitant]
  8. DILTIAZEM HCL (DILTIAZEM HYDROCHLORIDE) (CAPSULES) [Concomitant]
  9. WARFARIN SODIUM (WARFARIN SODIUM) (CAPSULES) [Concomitant]
  10. CARDIZEM CD (DILTIAZEM HYDROCHLORIDE) [Concomitant]
  11. DETROL (TOLTERODINE L-TARTRATE) [Concomitant]
  12. VITAMIN B12 (CYANOCOBALAMIN) [Concomitant]
  13. PRAVACHOL (PRAVASTATIN SODIUM) [Concomitant]
  14. MULTAQ (DRONEDARONE HYDROCHLORIDE) [Concomitant]
  15. VENTOLIN HFA (SALBUTAMOL SULFATE) [Concomitant]
  16. FOLIC ACID (FOLIC ACID) [Concomitant]
  17. OMNICEF (CEFDINIR) [Concomitant]
  18. VITAMIN K (PHYTOMENADIONE) [Concomitant]
  19. XARELTO (RIVAROXABAN) [Concomitant]
  20. FRESH FROZEN PLASMA (PLASMA) [Concomitant]

REACTIONS (3)
  - Sepsis [None]
  - Renal failure acute [None]
  - Pneumonia pneumococcal [None]
